FAERS Safety Report 25128465 (Version 2)
Quarter: 2025Q2

REPORT INFORMATION
  Report Type: Spontaneous
  Country: BG (occurrence: BG)
  Receive Date: 20250327
  Receipt Date: 20250402
  Transmission Date: 20250717
  Serious: Yes (Hospitalization)
  Sender: MYLAN
  Company Number: BG-MYLANLABS-2025M1026253

PATIENT
  Age: 64 Year
  Sex: Female

DRUGS (14)
  1. VALSARTAN [Suspect]
     Active Substance: VALSARTAN
     Indication: Hypertension
     Dosage: 160 MILLIGRAM, QD (HALF A TABLET IN THE MORNING)
     Dates: start: 202304
  2. VALSARTAN [Suspect]
     Active Substance: VALSARTAN
  3. BISOPROLOL [Suspect]
     Active Substance: BISOPROLOL
     Indication: Hypertension
     Dosage: 5 MILLIGRAM, QD (HALF A TABLET IN THE MORNING)
     Dates: start: 202304
  4. BISOPROLOL [Suspect]
     Active Substance: BISOPROLOL
  5. ROSUVASTATIN [Suspect]
     Active Substance: ROSUVASTATIN
     Indication: Vertebrobasilar stroke
     Dosage: 10 MILLIGRAM, QD (ONCE IN THE EVENING)
     Dates: start: 202304
  6. MOXONIDINE [Suspect]
     Active Substance: MOXONIDINE
     Indication: Hypertension
     Dosage: 0.2 MILLIGRAM, BID
  7. SPIRONOLACTONE [Suspect]
     Active Substance: SPIRONOLACTONE
     Indication: Hypertension
     Dosage: 25 MILLIGRAM, QD (ONCE IN THE MORNING)
     Dates: start: 202304
  8. SPIRONOLACTONE [Suspect]
     Active Substance: SPIRONOLACTONE
  9. CHLORTHALIDONE [Suspect]
     Active Substance: CHLORTHALIDONE
     Indication: Hypertension
     Dosage: 25 MILLIGRAM, QD (ONCE IN THE MORNING)
     Dates: start: 202304
  10. CHLORTHALIDONE [Suspect]
     Active Substance: CHLORTHALIDONE
  11. CLOPIDOGREL [Concomitant]
     Active Substance: CLOPIDOGREL BISULFATE
     Indication: Vertebrobasilar stroke
     Dosage: 75 MILLIGRAM, QD (ONCE IN THE MORNING)
     Dates: start: 202304
  12. BETAHISTINE [Concomitant]
     Active Substance: BETAHISTINE
     Indication: Product used for unknown indication
     Dosage: 24 MILLIGRAM, BID (ONE IN THE MORNING AND ONE IN THE EVENING)
     Dates: start: 202304
  13. LORATADINE [Concomitant]
     Active Substance: LORATADINE
     Indication: Lichen planopilaris
     Dosage: 5 MILLIGRAM, QD
  14. CLOBETASOL [Concomitant]
     Active Substance: CLOBETASOL
     Indication: Lichen planopilaris
     Dosage: UNK, BID

REACTIONS (2)
  - Lichen planopilaris [Recovering/Resolving]
  - Drug ineffective [Unknown]
